FAERS Safety Report 25206481 (Version 2)
Quarter: 2025Q2

REPORT INFORMATION
  Report Type: Spontaneous
  Country: FR (occurrence: FR)
  Receive Date: 20250417
  Receipt Date: 20250424
  Transmission Date: 20250717
  Serious: Yes (Hospitalization, Other)
  Sender: AUROBINDO
  Company Number: FR-MLMSERVICE-20250326-PI458362-00052-1

PATIENT
  Age: 77 Year
  Sex: Male

DRUGS (5)
  1. AMOXICILLIN [Suspect]
     Active Substance: AMOXICILLIN
     Indication: Pneumonia
     Route: 065
  2. IRBESARTAN [Concomitant]
     Active Substance: IRBESARTAN
     Indication: Hypertension
     Route: 065
  3. BISOPROLOL [Concomitant]
     Active Substance: BISOPROLOL
     Indication: Hypertension
     Route: 065
  4. CARBIMAZOLE [Concomitant]
     Active Substance: CARBIMAZOLE
     Indication: Graves^ disease
     Route: 065
  5. CLOBETASOL PROPIONATE [Concomitant]
     Active Substance: CLOBETASOL PROPIONATE
     Indication: Skin lesion
     Route: 061

REACTIONS (1)
  - Linear IgA disease [Recovered/Resolved]
